FAERS Safety Report 12801629 (Version 4)
Quarter: 2020Q1

REPORT INFORMATION
  Report Type: Spontaneous
  Country: US (occurrence: US)
  Receive Date: 20161003
  Receipt Date: 20200316
  Transmission Date: 20200409
  Serious: No
  Sender: FDA-Public Use
  Company Number: US-PFIZER INC-2016454695

PATIENT
  Age: 54 Year
  Sex: Female
  Weight: 78.2 kg

DRUGS (1)
  1. XELJANZ [Suspect]
     Active Substance: TOFACITINIB CITRATE
     Dosage: 5 MG, UNK

REACTIONS (5)
  - Rash [Unknown]
  - Psoriasis [Unknown]
  - Malaise [Unknown]
  - Influenza [Unknown]
  - Nasopharyngitis [Unknown]
